FAERS Safety Report 20383941 (Version 2)
Quarter: 2022Q1

REPORT INFORMATION
  Report Type: Spontaneous
  Country: IT (occurrence: IT)
  Receive Date: 20220127
  Receipt Date: 20220210
  Transmission Date: 20220423
  Serious: Yes (Other)
  Sender: FDA-Public Use
  Company Number: IT-TEVA-2022-IT-2001074

PATIENT
  Age: 55 Year
  Sex: Female

DRUGS (7)
  1. BUSULFAN [Suspect]
     Active Substance: BUSULFAN
     Indication: Bone marrow conditioning regimen
     Route: 065
     Dates: start: 2020, end: 2020
  2. FLUDARABINE [Suspect]
     Active Substance: FLUDARABINE PHOSPHATE
     Indication: Bone marrow conditioning regimen
     Route: 065
     Dates: start: 2020, end: 2020
  3. GEMCITABINE [Suspect]
     Active Substance: GEMCITABINE
     Indication: Peripheral T-cell lymphoma unspecified stage III
     Route: 065
     Dates: start: 202001, end: 202002
  4. GEMCITABINE [Suspect]
     Active Substance: GEMCITABINE
     Indication: Peripheral T-cell lymphoma unspecified recurrent
  5. DUVELISIB [Suspect]
     Active Substance: DUVELISIB
     Indication: Peripheral T-cell lymphoma unspecified stage III
     Dosage: 150 MILLIGRAM DAILY; RECEIVED TWO 28-DAY CYCLES
     Route: 065
     Dates: start: 202003
  6. DUVELISIB [Suspect]
     Active Substance: DUVELISIB
     Indication: Peripheral T-cell lymphoma unspecified recurrent
  7. THIOTEPA [Suspect]
     Active Substance: THIOTEPA
     Indication: Bone marrow conditioning regimen
     Route: 065
     Dates: start: 2020, end: 2020

REACTIONS (5)
  - Drug ineffective [Unknown]
  - Arthralgia [Unknown]
  - Rash [Unknown]
  - Paraesthesia [Unknown]
  - Mucosal inflammation [Unknown]

NARRATIVE: CASE EVENT DATE: 20200101
